FAERS Safety Report 24565249 (Version 1)
Quarter: 2024Q4

REPORT INFORMATION
  Report Type: Spontaneous
  Country: DE (occurrence: DE)
  Receive Date: 20241030
  Receipt Date: 20241030
  Transmission Date: 20250115
  Serious: Yes (Other)
  Sender: SANDOZ
  Company Number: DE-SANDOZ-SDZ2024DE090656

PATIENT

DRUGS (1)
  1. ACYCLOVIR [Suspect]
     Active Substance: ACYCLOVIR
     Indication: Eczema herpeticum
     Dosage: UNK
     Route: 065

REACTIONS (3)
  - Eczema herpeticum [Unknown]
  - Condition aggravated [Unknown]
  - Sleep disorder [Unknown]
